FAERS Safety Report 6628063-3 (Version None)
Quarter: 2010Q1

REPORT INFORMATION
  Report Type: 
  Country: None (occurrence: None)
  Receive Date: 20100311
  Receipt Date: 20090923
  Transmission Date: 20100710
  Serious: No
  Sender: FDA-Public Use
  Company Number: A0802403A

PATIENT
  Age: 81 Year
  Sex: Female

DRUGS (1)
  1. NICORETTE (MINT) [Suspect]

REACTIONS (3)
  - DRUG INEFFECTIVE [None]
  - NICOTINE DEPENDENCE [None]
  - WHEEZING [None]
